APPROVED DRUG PRODUCT: THIAMINE HYDROCHLORIDE
Active Ingredient: THIAMINE HYDROCHLORIDE
Strength: 100MG/ML
Dosage Form/Route: INJECTABLE;INJECTION
Application: A217181 | Product #001 | TE Code: AP
Applicant: ONESOURCE SPECIALTY PTE LTD
Approved: Oct 29, 2024 | RLD: No | RS: No | Type: RX